FAERS Safety Report 25725841 (Version 1)
Quarter: 2025Q3

REPORT INFORMATION
  Report Type: Report from Study
  Country: EG (occurrence: EG)
  Receive Date: 20250826
  Receipt Date: 20250826
  Transmission Date: 20251020
  Serious: Yes (Hospitalization, Disabling)
  Sender: ROCHE
  Company Number: EG-ROCHE-10000367074

PATIENT
  Age: 41 Year
  Sex: Male
  Weight: 70 kg

DRUGS (1)
  1. OCREVUS [Suspect]
     Active Substance: OCRELIZUMAB
     Indication: Multiple sclerosis
     Route: 042
     Dates: start: 20210105

REACTIONS (2)
  - Balance disorder [Not Recovered/Not Resolved]
  - Multiple sclerosis [Not Recovered/Not Resolved]
